FAERS Safety Report 20325339 (Version 1)
Quarter: 2022Q1

REPORT INFORMATION
  Report Type: Spontaneous
  Country: NL (occurrence: NL)
  Receive Date: 20220112
  Receipt Date: 20220112
  Transmission Date: 20220424
  Serious: Yes (Other)
  Sender: FDA-Public Use
  Company Number: NL-LRB-00723700

PATIENT
  Age: 51 Year
  Sex: Female
  Weight: 70 kg

DRUGS (1)
  1. ISOTRETINOIN [Suspect]
     Active Substance: ISOTRETINOIN
     Indication: Rosacea
     Dosage: 30 MILLIGRAM, DAILY, 1XDAILY1CAPSULE
     Route: 065
     Dates: start: 20210910

REACTIONS (1)
  - Atrial fibrillation [Not Recovered/Not Resolved]

NARRATIVE: CASE EVENT DATE: 20211201
